FAERS Safety Report 8257349-4 (Version None)
Quarter: 2012Q1

REPORT INFORMATION
  Report Type: 
  Country: None (occurrence: None)
  Receive Date: 20120330
  Receipt Date: 20120319
  Transmission Date: 20120608
  Serious: Yes (Death, Other)
  Sender: FDA-Public Use
  Company Number: FK201200866

PATIENT
  Age: 86 Year
  Sex: Female

DRUGS (1)
  1. VANCOMYCIN [Suspect]
     Indication: ENDOCARDITIS
     Dosage: 500 MG, PER 24 HOURS X 4 DAYS, INTRAVENOUS (NOT OTHERWISE SPECIFIED), 500 MG, Q12HOURS X 3 DAYS, INT
     Route: 042

REACTIONS (3)
  - PATHOGEN RESISTANCE [None]
  - ENTEROCOCCAL INFECTION [None]
  - TREATMENT FAILURE [None]
